FAERS Safety Report 17564486 (Version 1)
Quarter: 2020Q1

REPORT INFORMATION
  Report Type: Spontaneous
  Country: DE (occurrence: DE)
  Receive Date: 20200320
  Receipt Date: 20200320
  Transmission Date: 20200409
  Serious: Yes (Other)
  Sender: FDA-Public Use
  Company Number: DE-BAUSCH-BL-2020-000797

PATIENT
  Age: 54 Year
  Sex: Female
  Weight: 60 kg

DRUGS (14)
  1. VINCRISTINE [Suspect]
     Active Substance: VINCRISTINE
     Indication: DIFFUSE LARGE B-CELL LYMPHOMA
     Route: 065
  2. GEMCITABINE. [Suspect]
     Active Substance: GEMCITABINE
     Indication: DIFFUSE LARGE B-CELL LYMPHOMA
     Route: 065
     Dates: start: 20190322
  3. THALIDOMIDE [Suspect]
     Active Substance: THALIDOMIDE
     Indication: DIFFUSE LARGE B-CELL LYMPHOMA
     Dosage: 1ST LINE, 6 CYCLES R-CHOP AND 2X RITUXIMAB
     Route: 065
     Dates: start: 201704, end: 201709
  4. RITUXIMAB. [Suspect]
     Active Substance: RITUXIMAB
     Indication: DIFFUSE LARGE B-CELL LYMPHOMA
     Dosage: 1ST LINE, 6 CYCLES R-CHOP AND 2X RITUXIMAB
     Route: 065
     Dates: start: 201704, end: 201704
  5. RITUXIMAB. [Suspect]
     Active Substance: RITUXIMAB
     Dosage: GEMCITABIN/OXALIPLATIN
     Route: 065
     Dates: start: 201904
  6. PREDNISOLONE. [Suspect]
     Active Substance: PREDNISOLONE
     Indication: DIFFUSE LARGE B-CELL LYMPHOMA
     Route: 065
  7. RITUXIMAB. [Suspect]
     Active Substance: RITUXIMAB
     Dosage: 2ND LINE, MATRIX-PROTOCOL (RITUXIMAB, MTX, ARA C, THIOTEPA) 4 CYCLES
     Route: 065
     Dates: start: 201803, end: 201806
  8. RITUXIMAB. [Suspect]
     Active Substance: RITUXIMAB
     Dosage: RADIOTHERAPY MEDIASTINAL LYMPHNODES
     Route: 065
     Dates: start: 20181101
  9. DEXAMETHASONE. [Suspect]
     Active Substance: DEXAMETHASONE
     Indication: DIFFUSE LARGE B-CELL LYMPHOMA
     Dosage: 1ST LINE, 6 CYCLES R-CHOP AND 2X RITUXIMAB
     Route: 065
     Dates: start: 201704, end: 201709
  10. RITUXIMAB. [Suspect]
     Active Substance: RITUXIMAB
     Dosage: OBINOTUZUMAB/BENDAMUSTIN, 1 CYCLE
     Route: 065
     Dates: start: 20190322
  11. METHOTREXATE. [Suspect]
     Active Substance: METHOTREXATE
     Indication: DIFFUSE LARGE B-CELL LYMPHOMA
     Dosage: 1ST LINE, 6 CYCLES R-CHOP AND 2X RITUXIMAB
     Route: 065
     Dates: start: 201704, end: 201709
  12. AZATHIOPRINE. [Suspect]
     Active Substance: AZATHIOPRINE
     Indication: DIFFUSE LARGE B-CELL LYMPHOMA
     Dosage: 1ST LINE, 6 CYCLES R-CHOP AND 2X RITUXIMAB
     Route: 065
     Dates: start: 201704, end: 201709
  13. RITUXIMAB. [Suspect]
     Active Substance: RITUXIMAB
     Dosage: FURTHER LINES, HIGH-DOSE BCNU/THIOTEPA AND AUTOLOGOUS STEM CELL SUPPORT. RADIOTHERAPY OF RIGHT EYE
     Route: 065
     Dates: start: 20180701
  14. CYCLOPHOSPHAMIDE. [Suspect]
     Active Substance: CYCLOPHOSPHAMIDE
     Indication: DIFFUSE LARGE B-CELL LYMPHOMA
     Dosage: 1ST LINE, 6 CYCLES R-CHOP AND 2X RITUXIMAB
     Route: 065
     Dates: start: 201704, end: 201709

REACTIONS (2)
  - Platelet count decreased [Unknown]
  - White blood cell count decreased [Unknown]

NARRATIVE: CASE EVENT DATE: 20190429
